FAERS Safety Report 8431100-7 (Version None)
Quarter: 2012Q2

REPORT INFORMATION
  Report Type: 
  Country: None (occurrence: None)
  Receive Date: 20120612
  Receipt Date: 20120608
  Transmission Date: 20120825
  Serious: Yes (Hospitalization)
  Sender: FDA-Public Use
  Company Number: FR-ROCHE-1061968

PATIENT
  Sex: Female
  Weight: 41 kg

DRUGS (13)
  1. VALSARTAN [Concomitant]
     Indication: HYPERTENSION
     Route: 048
  2. ASPIRIN [Concomitant]
     Indication: ANGINA PECTORIS
     Route: 048
  3. AMLODIPINE BESYLATE [Concomitant]
     Indication: ANGINA PECTORIS
     Route: 048
  4. VITAMIN D [Concomitant]
     Indication: OSTEOPOROSIS
     Dosage: AMPOULE
     Route: 048
  5. COPEGUS [Suspect]
     Indication: HEPATITIS C
     Route: 048
     Dates: start: 20120123
  6. RALOXIFENE [Concomitant]
     Indication: OSTEOPOROSIS
     Route: 048
  7. NEXIUM [Concomitant]
     Indication: GASTROOESOPHAGEAL REFLUX DISEASE
     Route: 048
  8. TMC435 (NS3/4A PROTEASE INHIBITOR) [Suspect]
     Indication: HEPATITIS C
     Dosage: LAST DOSE PRIOR TO SAE ON 15/APR/2012
     Route: 048
     Dates: start: 20120123
  9. BETAMETHASONE [Concomitant]
     Route: 061
     Dates: start: 20120206
  10. PEGASYS [Suspect]
     Indication: HEPATITIS C
     Route: 058
     Dates: start: 20120123
  11. NITROGLYCERIN [Concomitant]
     Indication: ANGINA PECTORIS
  12. FERROUS SULFATE TAB [Concomitant]
     Indication: ANAEMIA
     Route: 048
  13. NEORECORMON [Concomitant]
     Route: 058
     Dates: start: 20120319

REACTIONS (2)
  - GENERAL PHYSICAL HEALTH DETERIORATION [None]
  - MALNUTRITION [None]
